FAERS Safety Report 8625448-0 (Version None)
Quarter: 2012Q3

REPORT INFORMATION
  Report Type: 
  Country: None (occurrence: None)
  Receive Date: 20120827
  Receipt Date: 20120727
  Transmission Date: 20120928
  Serious: No
  Sender: FDA-Public Use
  Company Number: US-BAYER-2012-076105

PATIENT
  Age: 75 Year
  Sex: Male

DRUGS (3)
  1. LEVITRA [Suspect]
     Indication: ERECTILE DYSFUNCTION
     Dosage: 20 MG 1 TO 2 TIMES A WEEK
     Route: 048
     Dates: start: 20090101
  2. FISH OIL [Concomitant]
  3. EYE DROPS [Concomitant]

REACTIONS (1)
  - ERECTILE DYSFUNCTION [None]
